FAERS Safety Report 5884637-9 (Version None)
Quarter: 2008Q3

REPORT INFORMATION
  Report Type: 
  Country: None (occurrence: None)
  Receive Date: 20080915
  Receipt Date: 20080915
  Transmission Date: 20090109
  Serious: Yes (Other)
  Sender: FDA-Public Use
  Company Number: None

PATIENT
  Age: 57 Year
  Sex: Female
  Weight: 96.1626 kg

DRUGS (3)
  1. ARIMIDEX [Suspect]
     Indication: BREAST CANCER
     Dates: start: 20080101
  2. ARIMIDEX [Suspect]
     Indication: OESTROGEN RECEPTOR ASSAY POSITIVE
     Dates: start: 20080101
  3. ARIMIDEX [Suspect]
     Indication: POSTMENOPAUSE
     Dates: start: 20080101

REACTIONS (1)
  - FATIGUE [None]
